FAERS Safety Report 16050318 (Version 2)
Quarter: 2019Q2

REPORT INFORMATION
  Report Type: Spontaneous
  Country: US (occurrence: US)
  Receive Date: 20190308
  Receipt Date: 20190417
  Transmission Date: 20190711
  Serious: Yes (Other)
  Sender: FDA-Public Use
  Company Number: US-GLAXOSMITHKLINE-US2019039329

PATIENT
  Age: 49 Year
  Sex: Male

DRUGS (1)
  1. NUCALA [Suspect]
     Active Substance: MEPOLIZUMAB
     Indication: PRODUCT USED FOR UNKNOWN INDICATION
     Dosage: UNK
     Dates: start: 20180201

REACTIONS (6)
  - Sinus operation [Unknown]
  - Dizziness [Unknown]
  - Asthma [Unknown]
  - Cough [Unknown]
  - Product dose omission [Unknown]
  - Syncope [Unknown]

NARRATIVE: CASE EVENT DATE: 201809
